FAERS Safety Report 8170658-2 (Version None)
Quarter: 2012Q1

REPORT INFORMATION
  Report Type: 
  Country: None (occurrence: None)
  Receive Date: 20120104
  Receipt Date: 20111011
  Transmission Date: 20120608
  Serious: No
  Sender: FDA-Public Use
  Company Number: 2011HGS-002629

PATIENT
  Age: 36 Year
  Sex: Female
  Weight: 56.6996 kg

DRUGS (6)
  1. PLAQUENIL [Concomitant]
  2. PAREDNISONE (PREDNISONE) [Concomitant]
  3. ASPIRIN [Concomitant]
  4. IRON SUPPLEMENT (IRON W/VITAMIN NOS) [Concomitant]
  5. VITAMIN D [Concomitant]
  6. BENLYSTA [Suspect]
     Indication: SYSTEMIC LUPUS ERYTHEMATOSUS
     Dosage: 10 MG/KG, 1 IN 28 D, INTRAVENOUS
     Route: 042
     Dates: start: 20110829

REACTIONS (6)
  - JOINT SWELLING [None]
  - OEDEMA PERIPHERAL [None]
  - ARTHRALGIA [None]
  - FATIGUE [None]
  - NASAL CONGESTION [None]
  - PAIN IN EXTREMITY [None]
